FAERS Safety Report 10325714 (Version 2)
Quarter: 2015Q1

REPORT INFORMATION
  Report Type: Other
  Country: US (occurrence: US)
  Receive Date: 20140720
  Receipt Date: 20150319
  Transmission Date: 20150720
  Serious: Yes (Hospitalization, Other)
  Sender: FDA-Public Use
  Company Number: US-GSKPPD-2014GSK039084

PATIENT
  Age: 49 Year
  Sex: Male
  Weight: 6.89 kg

DRUGS (10)
  1. ASPIRIN. [Concomitant]
     Active Substance: ASPIRIN
  2. DIGOXIN. [Concomitant]
     Active Substance: DIGOXIN
  3. HYDROCHLOROTHIAZIDE. [Concomitant]
     Active Substance: HYDROCHLOROTHIAZIDE
     Dosage: TREATMENT MEDICATION
     Route: 048
     Dates: start: 200312
  4. FUROSEMIDE. [Concomitant]
     Active Substance: FUROSEMIDE
     Route: 048
     Dates: start: 20031220
  5. LOVENOX [Concomitant]
     Active Substance: ENOXAPARIN SODIUM
     Dosage: TREATMENT MEDICATION
     Route: 058
     Dates: start: 200312
  6. COUMADIN [Concomitant]
     Active Substance: WARFARIN SODIUM
     Dosage: TREATMENT MEDICATION
     Route: 048
     Dates: start: 200312
  7. CARVEDILOL. [Concomitant]
     Active Substance: CARVEDILOL
     Dosage: TREATMENT MEDICATION
     Route: 048
     Dates: start: 200312
  8. LOSARTAN [Concomitant]
     Active Substance: LOSARTAN
     Route: 048
  9. PLAVIX [Concomitant]
     Active Substance: CLOPIDOGREL BISULFATE
     Dosage: TREATMENT MEDICATION
     Dates: start: 200312
  10. AVANDIA [Suspect]
     Active Substance: ROSIGLITAZONE MALEATE
     Indication: DIABETES MELLITUS
     Dosage: DATES OF AVANDIA USE COULD NOT BE CONFIRMED IN RECORDS REVIEWED
     Route: 048
     Dates: start: 200312

REACTIONS (1)
  - Cardiac failure congestive [Recovered/Resolved]

NARRATIVE: CASE EVENT DATE: 20031217
